FAERS Safety Report 17942095 (Version 3)
Quarter: 2021Q1

REPORT INFORMATION
  Report Type: Spontaneous
  Country: US (occurrence: US)
  Receive Date: 20200625
  Receipt Date: 20210324
  Transmission Date: 20210419
  Serious: No
  Sender: FDA-Public Use
  Company Number: US-SA-2020SA161447

PATIENT
  Age: 19 Year
  Sex: Female

DRUGS (4)
  1. TYLENOL [Concomitant]
     Active Substance: ACETAMINOPHEN
     Indication: DERMATITIS ATOPIC
  2. MIDOL [Concomitant]
     Active Substance: IBUPROFEN
  3. DUPIXENT [Suspect]
     Active Substance: DUPILUMAB
     Indication: DERMATITIS ATOPIC
     Dosage: 300 MG, QOW
     Route: 058
     Dates: start: 202001
  4. MIDOL [ACETYLSALICYLIC ACID] [Concomitant]

REACTIONS (3)
  - Paraesthesia [Unknown]
  - Paraesthesia [Unknown]
  - Stress [Unknown]

NARRATIVE: CASE EVENT DATE: 20210122
